FAERS Safety Report 8794524 (Version 1)
Quarter: 2012Q4

REPORT INFORMATION
  Report Type: 
  Country: US (occurrence: US)
  Receive Date: 20120917
  Receipt Date: 20120917
  Transmission Date: 20130627
  Serious: No
  Sender: FDA-Public Use
  Company Number: US-VERTEX PHARMACEUTICAL INC.-AE-2012-010063

PATIENT
  Sex: Male
  Weight: 63.5 kg

DRUGS (5)
  1. VX-950 [Suspect]
     Indication: HEPATITIS C
     Dosage: 750 mg, tid
     Route: 048
     Dates: start: 201110, end: 20120515
  2. PEGASYS [Concomitant]
     Indication: HEPATITIS C
     Dosage: 180, weekly
     Route: 058
     Dates: start: 201110, end: 20120515
  3. PEGASYS [Concomitant]
     Dosage: 180 ?g, weekly
     Route: 058
     Dates: start: 20120605
  4. RIBASPHERE [Concomitant]
     Indication: HEPATITIS C
     Dosage: 400 mg, bid
     Route: 048
     Dates: start: 201110, end: 20120515
  5. RIBASPHERE [Concomitant]
     Dosage: 400 mg, bid
     Route: 048
     Dates: start: 20120605

REACTIONS (1)
  - Drug ineffective [Unknown]
